FAERS Safety Report 18277029 (Version 1)
Quarter: 2020Q3

REPORT INFORMATION
  Report Type: Spontaneous
  Country: BR (occurrence: BR)
  Receive Date: 20200917
  Receipt Date: 20200917
  Transmission Date: 20201103
  Serious: Yes (Other)
  Sender: FDA-Public Use
  Company Number: BR-EMD SERONO-9185748

PATIENT
  Age: 34 Year
  Sex: Female

DRUGS (5)
  1. GLIFAGE [Suspect]
     Active Substance: METFORMIN HYDROCHLORIDE
     Indication: DIABETES MELLITUS
     Route: 048
     Dates: start: 2016, end: 20200831
  2. FLUOXETINE [Concomitant]
     Active Substance: FLUOXETINE HYDROCHLORIDE
     Indication: HALLUCINATION, AUDITORY
  3. DIAZEPAM. [Concomitant]
     Active Substance: DIAZEPAM
     Indication: HALLUCINATION, AUDITORY
  4. FLUOXETINE [Concomitant]
     Active Substance: FLUOXETINE HYDROCHLORIDE
     Indication: INJURY
  5. DIAZEPAM. [Concomitant]
     Active Substance: DIAZEPAM
     Indication: INJURY

REACTIONS (3)
  - Asthma [Recovering/Resolving]
  - Diarrhoea [Not Recovered/Not Resolved]
  - Nephrolithiasis [Not Recovered/Not Resolved]

NARRATIVE: CASE EVENT DATE: 202004
